FAERS Safety Report 11805227 (Version 1)
Quarter: 2015Q4

REPORT INFORMATION
  Report Type: Other
  Country: IT (occurrence: IT)
  Receive Date: 20151206
  Receipt Date: 20151206
  Transmission Date: 20160305
  Serious: Yes (Hospitalization)
  Sender: FDA-Public Use
  Company Number: IT-MYLANLABS-2015M1042131

PATIENT

DRUGS (6)
  1. LASIX [Concomitant]
     Active Substance: FUROSEMIDE
     Indication: PRODUCT USED FOR UNKNOWN INDICATION
     Dosage: 25 MG, UNK
     Route: 048
  2. LANOXIN [Concomitant]
     Active Substance: DIGOXIN
     Indication: ATRIAL FIBRILLATION
     Dosage: 0.125 MG, UNK
     Route: 048
  3. MELOXICAM MYLAN GENERICS 15MG [Suspect]
     Active Substance: MELOXICAM
     Indication: NECK PAIN
     Dosage: 15 MG, PRN
     Route: 048
     Dates: start: 20150601, end: 20150826
  4. SELEPARINA [Concomitant]
     Active Substance: NADROPARIN CALCIUM
     Indication: ATRIAL FIBRILLATION
     Dosage: 8000 DF, UNK
     Route: 058
  5. IGROTON [Concomitant]
     Active Substance: CHLORTHALIDONE
     Indication: PRODUCT USED FOR UNKNOWN INDICATION
     Dosage: 25 MG, UNK
     Route: 048
  6. ZYLORIC [Concomitant]
     Active Substance: ALLOPURINOL
     Indication: PRODUCT USED FOR UNKNOWN INDICATION
     Dosage: 300 MG, UNK
     Route: 048

REACTIONS (2)
  - Acute kidney injury [Recovering/Resolving]
  - Hyponatraemia [Recovering/Resolving]

NARRATIVE: CASE EVENT DATE: 20150826
